FAERS Safety Report 5582920-8 (Version None)
Quarter: 2007Q4

REPORT INFORMATION
  Report Type: 
  Country: None (occurrence: None)
  Receive Date: 20071231
  Receipt Date: 20071213
  Transmission Date: 20080405
  Serious: Yes (Hospitalization)
  Sender: FDA-Public Use
  Company Number: PPC200700010

PATIENT
  Age: 79 Year
  Sex: Male
  Weight: 75 kg

DRUGS (9)
  1. VANCOMYCIN HYDROCHLORIDE [Suspect]
     Indication: ARTERIAL GRAFT
     Dosage: 2 GM (1 GM, 1 IN 12 HR), INTRAVENOUS
     Route: 042
     Dates: start: 20071025, end: 20071028
  2. VANCOMYCIN HYDROCHLORIDE [Suspect]
     Indication: GRAFT INFECTION
     Dosage: 2 GM (1 GM, 1 IN 12 HR), INTRAVENOUS
     Route: 042
     Dates: start: 20071025, end: 20071028
  3. RAMIPRIL [Suspect]
     Indication: CORONARY ARTERY DISEASE
     Dosage: 2.5 MG (1 GM, 1 IN D), INTRAVENOUS
     Route: 042
     Dates: start: 20071031, end: 20071113
  4. COUMADIN [Concomitant]
  5. ATORVASTATIN CALCIUM [Concomitant]
  6. METOPROLOL TARTRATE [Concomitant]
  7. FUROSEMIDE [Concomitant]
  8. CIPRO (CYPROHEPTADINE HYDROCHLORIDE) [Concomitant]
  9. CLOPIDOGREL [Concomitant]

REACTIONS (3)
  - DRUG LEVEL FLUCTUATING [None]
  - REFUSAL OF TREATMENT BY PATIENT [None]
  - RENAL FAILURE ACUTE [None]
